FAERS Safety Report 10029643 (Version 1)
Quarter: 2014Q1

REPORT INFORMATION
  Report Type: Spontaneous
  Country: US (occurrence: None)
  Receive Date: 20140320
  Receipt Date: 20140320
  Transmission Date: 20141002
  Serious: Yes (Life-Threatening, Hospitalization)
  Sender: FDA-Public Use
  Company Number: None

PATIENT
  Age: 59 Year
  Sex: Male
  Weight: 90.72 kg

DRUGS (7)
  1. EXENATIDE [Suspect]
     Indication: DIABETES MELLITUS
     Route: 030
     Dates: start: 20140307
  2. GABAPENTIN [Concomitant]
  3. LISINOPRIL [Concomitant]
  4. TAMSULOSIN [Concomitant]
  5. TRAZODONE [Concomitant]
  6. VENLAFAXINE [Concomitant]
  7. EXENATIDE [Concomitant]

REACTIONS (3)
  - Suicidal ideation [None]
  - Depression [None]
  - Affective disorder [None]
